FAERS Safety Report 6177779-4 (Version None)
Quarter: 2009Q2

REPORT INFORMATION
  Report Type: 
  Country: None (occurrence: None)
  Receive Date: 20090501
  Receipt Date: 20090501
  Transmission Date: 20091009
  Serious: No
  Sender: FDA-Public Use
  Company Number: None

PATIENT
  Age: 59 Year
  Sex: Female

DRUGS (13)
  1. INSULIN GLARGINE [Suspect]
     Indication: TYPE 2 DIABETES MELLITUS
     Dosage: 18 UNITS SQ QHS
     Route: 058
     Dates: start: 20090306
  2. INSULIN ASPART [Suspect]
     Dosage: SSI-M QID
     Dates: start: 20090306
  3. HEP SQ, [Concomitant]
  4. ASPIRIN [Concomitant]
  5. CITALOPRAM HYDROBROMIDE [Concomitant]
  6. CLONIDINE [Concomitant]
  7. DAPTOMYCIN [Concomitant]
  8. LABETALOL HCL [Concomitant]
  9. LEVOTHYROXINE SODIUM [Concomitant]
  10. NEPHROCAP [Concomitant]
  11. SEVELAMER [Concomitant]
  12. SIMVASTATIN [Concomitant]
  13. TACROLIMUS [Concomitant]

REACTIONS (4)
  - BLOOD GLUCOSE DECREASED [None]
  - BLOOD GLUCOSE INCREASED [None]
  - HYPERHIDROSIS [None]
  - PALLOR [None]
